FAERS Safety Report 18329012 (Version 1)
Quarter: 2020Q3

REPORT INFORMATION
  Report Type: Spontaneous
  Country: US (occurrence: US)
  Receive Date: 20200930
  Receipt Date: 20200930
  Transmission Date: 20201103
  Serious: No
  Sender: FDA-Public Use
  Company Number: US-ASTRAZENECA-2020SF22485

PATIENT
  Age: 68 Year
  Sex: Female
  Weight: 81.6 kg

DRUGS (1)
  1. PULMICORT FLEXHALER [Suspect]
     Active Substance: BUDESONIDE
     Indication: ASTHMA
     Dosage: 1 PUFF DAILY AS NEEDED
     Route: 055
     Dates: start: 2020

REACTIONS (3)
  - Product dose omission issue [Unknown]
  - Weight increased [Unknown]
  - Device defective [Unknown]

NARRATIVE: CASE EVENT DATE: 2020
